FAERS Safety Report 6715324-2 (Version None)
Quarter: 2010Q2

REPORT INFORMATION
  Report Type: 
  Country: None (occurrence: None)
  Receive Date: 20100507
  Receipt Date: 20100427
  Transmission Date: 20101027
  Serious: Yes (Hospitalization)
  Sender: FDA-Public Use
  Company Number: BE-JNJFOC-20081102362

PATIENT
  Sex: Male
  Weight: 65 kg

DRUGS (4)
  1. REMICADE [Suspect]
     Indication: CROHN'S DISEASE
     Route: 042
  2. REMICADE [Suspect]
     Route: 042
  3. REMICADE [Suspect]
     Route: 042
  4. IMURAN [Concomitant]
     Indication: CROHN'S DISEASE

REACTIONS (3)
  - ANAL ABSCESS [None]
  - COLOSTOMY [None]
  - COLOSTOMY CLOSURE [None]
